FAERS Safety Report 5573835-X (Version None)
Quarter: 2007Q4

REPORT INFORMATION
  Report Type: 
  Country: None (occurrence: None)
  Receive Date: 20071226
  Receipt Date: 20071220
  Transmission Date: 20080405
  Serious: Yes (Hospitalization)
  Sender: FDA-Public Use
  Company Number: IT-ASTRAZENECA-2007SE06153

PATIENT
  Age: 28588 Day
  Sex: Female

DRUGS (2)
  1. ZESTORETIC [Suspect]
     Indication: ESSENTIAL HYPERTENSION
     Dosage: 20 + 12 MG / DAY
     Route: 048
     Dates: start: 20050101
  2. LASIX [Suspect]
     Indication: GRAVITATIONAL OEDEMA
     Route: 048
     Dates: start: 20071010, end: 20071113

REACTIONS (2)
  - HYPOKALAEMIC SYNDROME [None]
  - MELAENA [None]
